FAERS Safety Report 9255119 (Version 1)
Quarter: 2013Q2

REPORT INFORMATION
  Report Type: Spontaneous
  Country: CA (occurrence: CA)
  Receive Date: 20130425
  Receipt Date: 20130425
  Transmission Date: 20140414
  Serious: Yes (Other)
  Sender: FDA-Public Use
  Company Number: CA-ELI_LILLY_AND_COMPANY-CA201304004924

PATIENT
  Age: 72 Year
  Sex: Female

DRUGS (5)
  1. CYMBALTA [Suspect]
     Indication: DEPRESSION
     Dosage: 60 MG, UNKNOWN
  2. SYNTHROID [Concomitant]
  3. CLONAZEPAM [Concomitant]
     Dosage: UNK, TID
  4. ABILIFY [Concomitant]
  5. CLONIDINE [Concomitant]
     Indication: HYPERHIDROSIS

REACTIONS (6)
  - Syncope [Unknown]
  - Glaucoma [Unknown]
  - Burns second degree [Unknown]
  - Drug ineffective [Unknown]
  - Feeling abnormal [Unknown]
  - Hyperhidrosis [Unknown]
